FAERS Safety Report 10247281 (Version 2)
Quarter: 2014Q2

REPORT INFORMATION
  Report Type: Spontaneous
  Country: JP (occurrence: JP)
  Receive Date: 20140619
  Receipt Date: 20140619
  Transmission Date: 20141212
  Serious: Yes (Hospitalization)
  Sender: FDA-Public Use
  Company Number: JP-ELI_LILLY_AND_COMPANY-JP201406001968

PATIENT
  Age: 19 Year
  Sex: Male
  Weight: 56.7 kg

DRUGS (3)
  1. HUMALOG LISPRO [Suspect]
     Indication: TYPE 1 DIABETES MELLITUS
     Route: 058
  2. HUMULIN REGULAR [Suspect]
     Indication: DIABETIC KETOACIDOSIS
     Dosage: UNK
     Route: 042
     Dates: start: 20140602
  3. INSULIN DEGLUDEC [Concomitant]
     Indication: TYPE 1 DIABETES MELLITUS
     Route: 058

REACTIONS (3)
  - Diabetic ketoacidosis [Unknown]
  - Hyperglycaemia [Unknown]
  - Drug ineffective [Recovered/Resolved]
